FAERS Safety Report 7031250-6 (Version None)
Quarter: 2010Q4

REPORT INFORMATION
  Report Type: 
  Country: None (occurrence: None)
  Receive Date: 20101006
  Receipt Date: 20100930
  Transmission Date: 20110411
  Serious: Yes (Other)
  Sender: FDA-Public Use
  Company Number: A0884237A

PATIENT
  Age: 21 Year
  Sex: Female

DRUGS (5)
  1. LAMICTAL [Suspect]
     Dosage: 400MG TWICE PER DAY
     Route: 048
  2. ORTHO CYCLEN-28 [Suspect]
     Route: 048
     Dates: start: 20050101
  3. TOPAMAX [Suspect]
     Dosage: 300MG TWICE PER DAY
  4. LAMOTRIGINE [Suspect]
     Route: 048
  5. NO CONCURRENT MEDICATION [Concomitant]

REACTIONS (1)
  - CONVULSION [None]
